FAERS Safety Report 24775970 (Version 3)
Quarter: 2025Q2

REPORT INFORMATION
  Report Type: Spontaneous
  Country: FR (occurrence: FR)
  Receive Date: 20241226
  Receipt Date: 20250410
  Transmission Date: 20250717
  Serious: Yes (Congenital Anomaly)
  Sender: JOHNSON AND JOHNSON
  Company Number: FR-JNJFOC-20241238432

PATIENT

DRUGS (4)
  1. STELARA [Suspect]
     Active Substance: USTEKINUMAB
     Indication: Crohn^s disease
     Route: 064
  2. STELARA [Suspect]
     Active Substance: USTEKINUMAB
     Route: 063
  3. FOLIC ACID [Concomitant]
     Active Substance: FOLIC ACID
  4. CHOLECALCIFEROL [Concomitant]
     Active Substance: CHOLECALCIFEROL

REACTIONS (3)
  - Anal atresia [Recovered/Resolved with Sequelae]
  - Foetal exposure during pregnancy [Recovered/Resolved with Sequelae]
  - Exposure via breast milk [Unknown]

NARRATIVE: CASE EVENT DATE: 20231201
